FAERS Safety Report 11310105 (Version 2)
Quarter: 2015Q3

REPORT INFORMATION
  Report Type: Report from Study
  Country: RO (occurrence: RO)
  Receive Date: 20150724
  Receipt Date: 20150806
  Transmission Date: 20151125
  Serious: Yes (Hospitalization)
  Sender: FDA-Public Use
  Company Number: RO-NOVOPROD-457060

PATIENT
  Age: 65 Year
  Sex: Male
  Weight: 118 kg

DRUGS (4)
  1. NOVORAPID [Suspect]
     Active Substance: INSULIN ASPART
     Dosage: DECREASED DOSE
     Route: 058
  2. IDEG 100U VIAL [Suspect]
     Active Substance: INSULIN DEGLUDEC
     Indication: TYPE 2 DIABETES MELLITUS
     Dosage: 110 U, QD
     Route: 058
     Dates: start: 20140827
  3. IDEG 100U VIAL [Suspect]
     Active Substance: INSULIN DEGLUDEC
     Dosage: DECREASED DOSE
     Route: 058
  4. NOVORAPID [Suspect]
     Active Substance: INSULIN ASPART
     Indication: TYPE 2 DIABETES MELLITUS
     Dosage: 198 U, QD
     Route: 058
     Dates: start: 20140827

REACTIONS (1)
  - Chronic kidney disease [Recovered/Resolved]

NARRATIVE: CASE EVENT DATE: 20150703
